FAERS Safety Report 18963288 (Version 1)
Quarter: 2021Q1

REPORT INFORMATION
  Report Type: Spontaneous
  Country: US (occurrence: US)
  Receive Date: 20210303
  Receipt Date: 20210303
  Transmission Date: 20210420
  Serious: Yes (Life-Threatening, Hospitalization)
  Sender: FDA-Public Use
  Company Number: None

PATIENT
  Age: 43 Year
  Sex: Male
  Weight: 90 kg

DRUGS (4)
  1. HALDOL [Suspect]
     Active Substance: HALOPERIDOL
  2. VALERIAN ROOT [Concomitant]
     Active Substance: VALERIAN
  3. MELATONINE [Concomitant]
     Active Substance: MELATONIN
  4. INOSITOL [Concomitant]
     Active Substance: INOSITOL

REACTIONS (3)
  - Cardiac arrest [None]
  - Muscle injury [None]
  - Alopecia [None]

NARRATIVE: CASE EVENT DATE: 20110101
